FAERS Safety Report 16160159 (Version 3)
Quarter: 2020Q3

REPORT INFORMATION
  Report Type: Report from Study
  Country: US (occurrence: US)
  Receive Date: 20190404
  Receipt Date: 20200824
  Transmission Date: 20201102
  Serious: Yes (Hospitalization, Other)
  Sender: FDA-Public Use
  Company Number: US-ACTELION-A-NJ2019-188656

PATIENT
  Age: 85 Year
  Sex: Female
  Weight: 88.44 kg

DRUGS (3)
  1. UPTRAVI [Suspect]
     Active Substance: SELEXIPAG
     Indication: PULMONARY ARTERIAL HYPERTENSION
     Dosage: 400 MCG, BID
     Route: 048
  2. XARELTO [Concomitant]
     Active Substance: RIVAROXABAN
  3. AMIODARONE [Concomitant]
     Active Substance: AMIODARONE
     Dosage: 200 MG, BID
     Route: 048

REACTIONS (9)
  - Arrhythmia [Unknown]
  - Hallucination [Unknown]
  - Blood pressure abnormal [Unknown]
  - Cardiac pacemaker insertion [Unknown]
  - Pleural effusion [Unknown]
  - Heart rate abnormal [Unknown]
  - Cardioversion [Unknown]
  - Dyspnoea [Unknown]
  - Dizziness [Unknown]

NARRATIVE: CASE EVENT DATE: 20200720
